FAERS Safety Report 16255397 (Version 1)
Quarter: 2019Q2

REPORT INFORMATION
  Report Type: Spontaneous
  Country: US (occurrence: US)
  Receive Date: 20190430
  Receipt Date: 20190430
  Transmission Date: 20190711
  Serious: Yes (Death, Other)
  Sender: FDA-Public Use
  Company Number: US-AUROBINDO-AUR-APL-2019-023077

PATIENT

DRUGS (1)
  1. TRANEXAMIC ACID. [Suspect]
     Active Substance: TRANEXAMIC ACID
     Indication: KNEE ARTHROPLASTY
     Dosage: 1 MILLIGRAM
     Route: 065

REACTIONS (5)
  - Unresponsive to stimuli [Unknown]
  - Pulse absent [Unknown]
  - Cardiac arrest [Fatal]
  - Pulmonary embolism [Unknown]
  - Dizziness [Unknown]
